FAERS Safety Report 10058014 (Version 1)
Quarter: 2014Q2

REPORT INFORMATION
  Report Type: Spontaneous
  Country: US (occurrence: None)
  Receive Date: 20140403
  Receipt Date: 20140403
  Transmission Date: 20141212
  Serious: Yes (Other)
  Sender: FDA-Public Use
  Company Number: None

PATIENT
  Age: 54 Year
  Sex: Female
  Weight: 55 kg

DRUGS (4)
  1. TECFIDERA [Suspect]
     Indication: MULTIPLE SCLEROSIS
     Route: 048
     Dates: start: 20130901, end: 20140301
  2. ALPRAZOLAM 0.25MG [Concomitant]
  3. VITAMIN C 250MG [Concomitant]
  4. ASTAXANTHIN [Concomitant]

REACTIONS (4)
  - Neuralgia [None]
  - Palpitations [None]
  - Flushing [None]
  - Gastric disorder [None]
